FAERS Safety Report 9794606 (Version 2)
Quarter: 2014Q1

REPORT INFORMATION
  Report Type: Spontaneous
  Country: US (occurrence: US)
  Receive Date: 20140102
  Receipt Date: 20140206
  Transmission Date: 20141002
  Serious: Yes (Other)
  Sender: FDA-Public Use
  Company Number: US-PFIZER INC-2013374800

PATIENT
  Age: 62 Year
  Sex: Female

DRUGS (14)
  1. XELJANZ [Suspect]
     Indication: RHEUMATOID ARTHRITIS
     Dosage: 5 MG, 2X/DAY
     Route: 048
  2. ACTONEL [Concomitant]
     Dosage: UNK
  3. FERROUS SULFATE [Concomitant]
     Dosage: UNK
  4. FOLIC ACID [Concomitant]
     Dosage: UNK
  5. KETOROLAC TROMETHAMINE [Concomitant]
     Dosage: UNK
  6. LISINOPRIL [Concomitant]
     Dosage: UNK
  7. LORTAB [Concomitant]
     Dosage: UNK
  8. MELOXICAM [Concomitant]
     Dosage: UNK
  9. METHOTREXATE [Concomitant]
     Dosage: UNK
  10. OMEPRAZOLE [Concomitant]
     Dosage: UNK
  11. OXYBUTYNIN CHLORIDE [Concomitant]
     Dosage: UNK
  12. SIMVASTATIN [Concomitant]
     Dosage: UNK
  13. TRAZODONE [Concomitant]
     Dosage: UNK
  14. SULFAZINE [Concomitant]

REACTIONS (1)
  - Neuropathy peripheral [Unknown]
